FAERS Safety Report 4430366-8 (Version None)
Quarter: 2004Q3

REPORT INFORMATION
  Report Type: 
  Country: None (occurrence: None)
  Receive Date: 20040721
  Receipt Date: 20030604
  Transmission Date: 20050211
  Serious: Yes (Life-Threatening, Hospitalization)
  Sender: FDA-Public Use
  Company Number: WAES 0306USA00482

PATIENT

DRUGS (3)
  1. VIOXX [Suspect]
     Indication: ARTHROPATHY
     Dosage: PO
     Route: 048
     Dates: start: 20030603
  2. NEURONTIN [Concomitant]
  3. ZANAFLEX [Concomitant]

REACTIONS (1)
  - BLOOD PRESSURE INCREASED [None]
